FAERS Safety Report 5357777-0 (Version None)
Quarter: 2007Q2

REPORT INFORMATION
  Report Type: 
  Country: None (occurrence: None)
  Receive Date: 20070530
  Receipt Date: 20070320
  Transmission Date: 20071010
  Serious: Yes (Hospitalization)
  Sender: FDA-Public Use
  Company Number: US200703004872

PATIENT
  Age: 78 Year
  Sex: Female

DRUGS (4)
  1. ZYPREXA [Suspect]
     Dosage: 2.5 MG
  2. NAVANE [Concomitant]
  3. LITHIUM CARBONATE [Concomitant]
  4. ZOLOFT [Concomitant]

REACTIONS (3)
  - DELIRIUM [None]
  - DROOLING [None]
  - INSOMNIA [None]
